FAERS Safety Report 8129914-6 (Version None)
Quarter: 2012Q1

REPORT INFORMATION
  Report Type: 
  Country: None (occurrence: None)
  Receive Date: 20120103
  Receipt Date: 20111121
  Transmission Date: 20120608
  Serious: No
  Sender: FDA-Public Use
  Company Number: AE-2011-003739

PATIENT

DRUGS (1)
  1. INCIVEK [Suspect]
     Dosage: ORAL
     Route: 048

REACTIONS (2)
  - PRURITUS [None]
  - RASH [None]
